FAERS Safety Report 6524752-X (Version None)
Quarter: 2009Q4

REPORT INFORMATION
  Report Type: 
  Country: None (occurrence: None)
  Receive Date: 20091230
  Receipt Date: 20091230
  Transmission Date: 20100525
  Serious: Yes (Other)
  Sender: FDA-Public Use
  Company Number: None

PATIENT
  Sex: Female
  Weight: 87.9978 kg

DRUGS (2)
  1. CRESTOR [Suspect]
     Dosage: 20MG 1 DAY ORAL
     Route: 048
     Dates: start: 20090207
  2. CRESTOR [Suspect]
     Dosage: 20MG 1 DAY ORAL
     Route: 048
     Dates: start: 20090320

REACTIONS (1)
  - MUSCLE SPASMS [None]
